FAERS Safety Report 8908587 (Version 1)
Quarter: 2012Q4

REPORT INFORMATION
  Report Type: 
  Country: JP (occurrence: JP)
  Receive Date: 20121114
  Receipt Date: 20121114
  Transmission Date: 20130627
  Serious: Yes (Hospitalization)
  Sender: FDA-Public Use
  Company Number: JP-PFIZER INC-2012284001

PATIENT
  Age: 83 Year

DRUGS (11)
  1. AMLODIN [Suspect]
     Indication: HYPERTENSION
     Dosage: 5 mg
     Route: 048
     Dates: start: 20100716
  2. GASMOTIN [Suspect]
     Indication: CHRONIC GASTRITIS
     Dosage: 15 mg
     Route: 048
     Dates: start: 20100809
  3. OMEPRAL [Concomitant]
     Indication: CHRONIC GASTRITIS
     Dosage: 20 milligram/day
     Route: 048
     Dates: start: 20100705
  4. BONALEN (ALENDRONATE SODIUM) [Concomitant]
     Indication: OSTEOPOROSIS
     Dosage: 35 mg/day
     Route: 048
     Dates: start: 20100713
  5. PREDNISOLONE [Concomitant]
     Indication: POLYMYALGIA RHEUMATICA
     Dosage: 3 milligram/day
     Route: 048
     Dates: start: 20100713
  6. MYONAL [Concomitant]
     Indication: SPONDYLOSIS
     Dosage: 150 milligram/day
     Route: 048
     Dates: start: 20120409
  7. MUCOSTA [Concomitant]
     Indication: CHRONIC GASTRITIS
     Dosage: 300 milligram/day
     Route: 048
     Dates: start: 20120409
  8. OPALMON [Concomitant]
     Indication: LUMBAR SPINAL STENOSIS
     Dosage: 15 microgram/day
     Route: 048
     Dates: start: 20120409
  9. SENNOSIDE [Concomitant]
     Indication: CONSTIPATION
     Dosage: 24 milligram/day
     Route: 048
     Dates: start: 20120420
  10. REVOLADE [Concomitant]
     Indication: IDIOPATHIC THROMBOCYTOPENIC PURPURA
     Dosage: 12.5 milligram/day
     Route: 048
     Dates: start: 20120420
  11. EDIROL [Concomitant]
     Indication: OSTEOPOROSIS
     Dosage: 0.75 microgram/day
     Route: 048
     Dates: start: 20120521

REACTIONS (1)
  - Hypoglycaemia [Recovered/Resolved]
